FAERS Safety Report 19860346 (Version 1)
Quarter: 2021Q3

REPORT INFORMATION
  Report Type: Spontaneous
  Country: SE (occurrence: SE)
  Receive Date: 20210921
  Receipt Date: 20210921
  Transmission Date: 20211014
  Serious: Yes (Other)
  Sender: FDA-Public Use
  Company Number: SE-TEVA-2021-SE-1954306

PATIENT
  Age: 49 Year
  Sex: Female
  Weight: 83 kg

DRUGS (3)
  1. KANDROZID 16 MG TABLETT [Concomitant]
     Dosage: 16MILLIGRAM
     Route: 048
     Dates: start: 20210427, end: 20210901
  2. METYLFENIDAT ACTAVIS 54 MG DEPOTTABLETT [Suspect]
     Active Substance: METHYLPHENIDATE HYDROCHLORIDE
     Indication: ATTENTION DEFICIT HYPERACTIVITY DISORDER
     Dosage: 54 MG 1 TABLET DAILY WITH 36 MG
     Route: 048
     Dates: start: 20210628, end: 20210828
  3. MELATONIN AGB 3 MG TABLETT [Concomitant]
     Dosage: 9MILLIGRAM
     Route: 048
     Dates: start: 20210426, end: 20210901

REACTIONS (2)
  - Depression [Recovered/Resolved]
  - Product substitution issue [Recovered/Resolved]

NARRATIVE: CASE EVENT DATE: 20210701
